FAERS Safety Report 6415576-2 (Version None)
Quarter: 2009Q4

REPORT INFORMATION
  Report Type: 
  Country: None (occurrence: None)
  Receive Date: 20091027
  Receipt Date: 20091023
  Transmission Date: 20100525
  Serious: Yes (Hospitalization)
  Sender: FDA-Public Use
  Company Number: GB-BRISTOL-MYERS SQUIBB COMPANY-14828438

PATIENT
  Age: 26 Year
  Sex: Male

DRUGS (3)
  1. ARIPIPRAZOLE [Suspect]
     Route: 048
  2. CLOPIXOL [Suspect]
     Indication: AGGRESSION
     Route: 030
     Dates: start: 20080306
  3. CLOZARIL [Suspect]
     Indication: SCHIZOPHRENIA
     Route: 048
     Dates: start: 20050914

REACTIONS (2)
  - NEUROLEPTIC MALIGNANT SYNDROME [None]
  - SCHIZOPHRENIA [None]
